FAERS Safety Report 19836331 (Version 1)
Quarter: 2021Q3

REPORT INFORMATION
  Report Type: Spontaneous
  Country: GB (occurrence: GB)
  Receive Date: 20210916
  Receipt Date: 20210916
  Transmission Date: 20211014
  Serious: Yes (Hospitalization, Other)
  Sender: FDA-Public Use
  Company Number: GB-AUROBINDO-AUR-APL-2021-038943

PATIENT
  Age: 23 Year
  Sex: Female
  Weight: 58.51 kg

DRUGS (3)
  1. CO?DYDRAMOL [Concomitant]
     Active Substance: ACETAMINOPHEN\DIHYDROCODEINE
     Indication: PRODUCT USED FOR UNKNOWN INDICATION
     Dosage: UNK
     Route: 065
  2. SERTRALINE [Suspect]
     Active Substance: SERTRALINE HYDROCHLORIDE
     Indication: ANXIETY
     Dosage: 50 MILLIGRAM
     Route: 048
     Dates: start: 2020
  3. XENIDATE XL [Concomitant]
     Active Substance: METHYLPHENIDATE HYDROCHLORIDE
     Indication: PRODUCT USED FOR UNKNOWN INDICATION
     Dosage: UNK
     Route: 065

REACTIONS (7)
  - Body temperature increased [Unknown]
  - Migraine [Unknown]
  - Dizziness [Unknown]
  - Illness [Unknown]
  - Palpitations [Unknown]
  - Withdrawal syndrome [Not Recovered/Not Resolved]
  - Hyperhidrosis [Unknown]
